FAERS Safety Report 12217156 (Version 1)
Quarter: 2016Q1

REPORT INFORMATION
  Report Type: Spontaneous
  Country: US (occurrence: US)
  Receive Date: 20160329
  Receipt Date: 20160329
  Transmission Date: 20160526
  Serious: No
  Sender: FDA-Public Use
  Company Number: US-B. BRAUN MEDICAL INC.-1049868

PATIENT

DRUGS (1)
  1. SORBITOL. [Suspect]
     Active Substance: SORBITOL

REACTIONS (1)
  - Joint injury [None]
